FAERS Safety Report 18640139 (Version 1)
Quarter: 2020Q4

REPORT INFORMATION
  Report Type: Spontaneous
  Country: CN (occurrence: CN)
  Receive Date: 20201220
  Receipt Date: 20201220
  Transmission Date: 20210114
  Serious: Yes (Hospitalization)
  Sender: FDA-Public Use
  Company Number: CN-BAXTER-2020BAX025780

PATIENT
  Age: 11 Year
  Sex: Male
  Weight: 30 kg

DRUGS (4)
  1. 0.9% SODIUM CHLORIDE INJECTION [Suspect]
     Active Substance: SODIUM CHLORIDE
     Indication: MEDICATION DILUTION
     Dosage: DAY 1-5, HOLOXAN 2.0 G + NS 500 ML
     Route: 041
     Dates: start: 20201103, end: 20201107
  2. 0.9% SODIUM CHLORIDE INJECTION [Suspect]
     Active Substance: SODIUM CHLORIDE
     Dosage: DAY 1-5, ETOPOSIDE 115 MG + NS 500 ML
     Route: 041
     Dates: start: 20201103, end: 20201107
  3. ETOPOSIDE. [Suspect]
     Active Substance: ETOPOSIDE
     Indication: BONE CANCER
     Dosage: DAY 1-5, ETOPOSIDE 115 MG + NS 500 ML
     Route: 041
     Dates: start: 20201103, end: 20201107
  4. HOLOXAN [Suspect]
     Active Substance: IFOSFAMIDE
     Indication: BONE CANCER
     Dosage: DAY 1-5, HOLOXAN 2.0 G + NS 500 ML
     Route: 041
     Dates: start: 20201103, end: 20201107

REACTIONS (1)
  - Myelosuppression [Recovering/Resolving]

NARRATIVE: CASE EVENT DATE: 20201113
